FAERS Safety Report 10266234 (Version 1)
Quarter: 2014Q2

REPORT INFORMATION
  Report Type: Spontaneous
  Country: US (occurrence: US)
  Receive Date: 20140627
  Receipt Date: 20140627
  Transmission Date: 20141212
  Serious: Yes (Death, Other)
  Sender: FDA-Public Use
  Company Number: US-CUBIST PHARMACEUTICAL, INC.-2014CBST000916

PATIENT
  Sex: 0

DRUGS (11)
  1. CUBICIN [Suspect]
     Indication: ENTEROCOCCAL INFECTION
     Dosage: 6 MG/KG, QD
     Route: 042
  2. CUBICIN [Suspect]
     Indication: LUNG INFECTION
  3. CUBICIN [Suspect]
     Indication: OFF LABEL USE
  4. CEFEPIME DCI [Concomitant]
     Indication: ENTEROCOCCAL INFECTION
     Dosage: UNK UNK, UNK
     Route: 065
  5. CEFEPIME DCI [Concomitant]
     Indication: LUNG INFECTION
  6. GENTAMICIN [Concomitant]
     Indication: ENTEROCOCCAL INFECTION
     Dosage: 1 MG/KG, Q8H
     Route: 042
  7. GENTAMICIN [Concomitant]
     Indication: LUNG INFECTION
  8. CHLORAMPHENICOL [Concomitant]
     Indication: ENTEROCOCCAL INFECTION
     Dosage: 1000 MG, Q6H
     Route: 042
  9. CHLORAMPHENICOL [Concomitant]
     Indication: LUNG INFECTION
  10. RIFAMPIN [Concomitant]
     Indication: ENTEROCOCCAL INFECTION
     Dosage: 300 MG, Q8H
     Route: 042
  11. RIFAMPIN [Concomitant]
     Indication: LUNG INFECTION

REACTIONS (6)
  - Acute respiratory failure [Fatal]
  - Enterococcal bacteraemia [Unknown]
  - Central nervous system infection [Unknown]
  - Hydrocephalus [None]
  - Subarachnoid haemorrhage [None]
  - Cardiac valve vegetation [Unknown]
